FAERS Safety Report 20433563 (Version 1)
Quarter: 2022Q1

REPORT INFORMATION
  Report Type: Spontaneous
  Country: US (occurrence: None)
  Receive Date: 20220205
  Receipt Date: 20220205
  Transmission Date: 20220423
  Serious: Yes (Hospitalization, Other)
  Sender: FDA-Public Use
  Company Number: US-MICRO LABS LIMITED-ML2022-00449

PATIENT
  Age: 84 Year
  Sex: Female

DRUGS (10)
  1. VERAPAMIL HYDROCHLORIDE [Suspect]
     Active Substance: VERAPAMIL HYDROCHLORIDE
  2. VERAPAMIL HYDROCHLORIDE [Suspect]
     Active Substance: VERAPAMIL HYDROCHLORIDE
     Dosage: VERAPAMIL 40 MG SPACED OUT OVER Q8H
  3. FLUCONAZOLE [Suspect]
     Active Substance: FLUCONAZOLE
     Indication: Cellulitis
     Route: 048
  4. PROPRANOLOL [Suspect]
     Active Substance: PROPRANOLOL HYDROCHLORIDE
     Dosage: 40 MG TWICE DAILY
  5. CEFAZOLIN [Concomitant]
     Active Substance: CEFAZOLIN
     Indication: Cellulitis
     Dosage: CEFAZOLIN 1 G Q8H
     Route: 042
  6. CEPHALEXIN [Concomitant]
     Active Substance: CEPHALEXIN
     Indication: Cellulitis
     Dosage: CEPHALEXIN 500 MG TWICE DAILY
     Route: 048
  7. TINACTIN [Concomitant]
     Active Substance: TOLNAFTATE
     Indication: Pain
  8. TINACTIN [Concomitant]
     Active Substance: TOLNAFTATE
     Indication: Erythema
  9. COUMADIN [Concomitant]
     Active Substance: WARFARIN SODIUM
  10. DUONEB [Concomitant]
     Active Substance: ALBUTEROL SULFATE\IPRATROPIUM BROMIDE
     Dosage: DUONEB INHALERS AS NEEDED

REACTIONS (6)
  - Hyperkalaemia [Unknown]
  - Acute kidney injury [Recovering/Resolving]
  - Drug interaction [Unknown]
  - Bradycardia [Recovered/Resolved]
  - Hypotension [Unknown]
  - Atrioventricular block first degree [Unknown]
